FAERS Safety Report 20316146 (Version 1)
Quarter: 2022Q1

REPORT INFORMATION
  Report Type: Other
  Country: US (occurrence: None)
  Receive Date: 20220110
  Receipt Date: 20220110
  Transmission Date: 20220423
  Serious: No
  Sender: FDA-Public Use
  Company Number: US-ROCHE-2836519

PATIENT
  Age: 12 Year
  Sex: Female

DRUGS (8)
  1. RITUXIMAB [Suspect]
     Active Substance: RITUXIMAB
     Indication: COVID-19
     Route: 065
  2. RITUXIMAB [Suspect]
     Active Substance: RITUXIMAB
     Indication: Anti-neutrophil cytoplasmic antibody positive vasculitis
  3. AMOXICILLIN [Concomitant]
     Active Substance: AMOXICILLIN
  4. CLINDAMYCIN [Concomitant]
     Active Substance: CLINDAMYCIN
  5. AZITHROMYCIN [Concomitant]
     Active Substance: AZITHROMYCIN
  6. VANCOMYCIN [Concomitant]
     Active Substance: VANCOMYCIN
  7. CEFEPIME [Concomitant]
     Active Substance: CEFEPIME HYDROCHLORIDE
  8. FLUCONAZOLE [Concomitant]
     Active Substance: FLUCONAZOLE

REACTIONS (2)
  - Off label use [Unknown]
  - No adverse event [Unknown]
